FAERS Safety Report 8477327 (Version 4)
Quarter: 2014Q3

REPORT INFORMATION
  Report Type: Spontaneous
  Country: GB (occurrence: GB)
  Receive Date: 20120327
  Receipt Date: 20140728
  Transmission Date: 20150326
  Serious: Yes (Hospitalization, Disabling, Other)
  Sender: FDA-Public Use
  Company Number: GB-RANBAXY-2012R1-53845

PATIENT
  Age: 79 Year
  Sex: Male
  Weight: 70 kg

DRUGS (3)
  1. WARFARIN [Concomitant]
     Active Substance: WARFARIN
     Indication: PRODUCT USED FOR UNKNOWN INDICATION
     Dosage: UNK
     Route: 065
  2. LISINOPRIL. [Suspect]
     Active Substance: LISINOPRIL
     Indication: HYPERTENSION
     Dosage: 15 MG, QD
     Route: 065
     Dates: start: 2004, end: 200606
  3. BENDROFLUMETHIAZIDE [Concomitant]
     Active Substance: BENDROFLUMETHIAZIDE
     Indication: PRODUCT USED FOR UNKNOWN INDICATION
     Dosage: 2.5 MG, 1DAYS
     Route: 065

REACTIONS (11)
  - Cerebral artery embolism [Unknown]
  - Burning sensation [Unknown]
  - Disability [Unknown]
  - Pain [Unknown]
  - Ulnar nerve palsy [Unknown]
  - Anaesthesia [Recovering/Resolving]
  - Paralysis [Recovering/Resolving]
  - Transient ischaemic attack [Unknown]
  - Extrasystoles [Recovering/Resolving]
  - Atrial fibrillation [Not Recovered/Not Resolved]
  - Dysphonia [Recovered/Resolved]

NARRATIVE: CASE EVENT DATE: 200606
